FAERS Safety Report 8237352-0 (Version None)
Quarter: 2012Q1

REPORT INFORMATION
  Report Type: 
  Country: None (occurrence: None)
  Receive Date: 20120327
  Receipt Date: 20120322
  Transmission Date: 20120608
  Serious: Yes (Death, Hospitalization)
  Sender: FDA-Public Use
  Company Number: JP-SANOFI-AVENTIS-2012SA004819

PATIENT
  Age: 75 Year
  Sex: Male
  Weight: 50 kg

DRUGS (12)
  1. LANSOPRAZOLE [Concomitant]
     Route: 048
     Dates: start: 20110616
  2. FENTANYL [Concomitant]
     Dosage: ONCE IN THREE DAYS
     Route: 062
     Dates: start: 20110615
  3. LOXOPROFEN [Concomitant]
     Route: 048
     Dates: start: 20110616
  4. MAGNESIUM OXIDE [Concomitant]
     Route: 048
     Dates: start: 20110611
  5. ESTRACYT [Concomitant]
     Indication: ADJUVANT THERAPY
     Route: 048
     Dates: start: 20111026
  6. OXINORM [Concomitant]
     Route: 048
     Dates: start: 20110611
  7. ZOMETA [Suspect]
     Indication: ADJUVANT THERAPY
     Route: 041
     Dates: start: 20110614
  8. CASODEX [Concomitant]
     Indication: ADJUVANT THERAPY
     Dates: start: 20110614, end: 20111026
  9. TAXOTERE [Suspect]
     Indication: PROSTATE CANCER
     Dosage: STRENGTH: 80 MG
     Route: 041
     Dates: start: 20111104, end: 20111228
  10. LEUPROLIDE ACETATE [Suspect]
     Indication: ADJUVANT THERAPY
     Dosage: FREQUENCY: EVERY 12 WEEKS
     Route: 058
     Dates: start: 20110622
  11. PREDNISOLONE [Concomitant]
     Indication: PROSTATE CANCER
     Route: 048
     Dates: start: 20111104
  12. TOYOFAROL [Concomitant]
     Route: 048
     Dates: start: 20110629

REACTIONS (5)
  - INTERSTITIAL LUNG DISEASE [None]
  - FEBRILE NEUTROPENIA [None]
  - PYREXIA [None]
  - RESPIRATORY FAILURE [None]
  - DECREASED APPETITE [None]
